FAERS Safety Report 7030947-1 (Version None)
Quarter: 2010Q4

REPORT INFORMATION
  Report Type: 
  Country: None (occurrence: None)
  Receive Date: 20101006
  Receipt Date: 20100929
  Transmission Date: 20110411
  Serious: Yes (Death)
  Sender: FDA-Public Use
  Company Number: US-CUBIST-2010S1001366

PATIENT
  Age: 71 Year
  Sex: Female
  Weight: 52 kg

DRUGS (13)
  1. CUBICIN [Suspect]
     Indication: ENDOCARDITIS
     Route: 042
     Dates: start: 20100827, end: 20100904
  2. CUBICIN [Suspect]
     Indication: PNEUMONIA
     Route: 042
     Dates: start: 20100827, end: 20100904
  3. CUBICIN [Suspect]
     Indication: BACTERAEMIA
     Route: 042
     Dates: start: 20100827, end: 20100904
  4. CUBICIN [Suspect]
     Route: 042
     Dates: start: 20100827, end: 20100904
  5. CUBICIN [Suspect]
     Route: 042
     Dates: start: 20100827, end: 20100904
  6. CUBICIN [Suspect]
     Route: 042
     Dates: start: 20100827, end: 20100904
  7. VANCOMYCIN [Concomitant]
     Indication: ENDOCARDITIS
     Route: 042
     Dates: start: 20100824, end: 20100827
  8. VANCOMYCIN [Concomitant]
     Indication: PNEUMONIA
     Route: 042
     Dates: start: 20100824, end: 20100827
  9. GENTAMICIN [Concomitant]
     Indication: ENDOCARDITIS
     Route: 042
     Dates: start: 20100825, end: 20100904
  10. GENTAMICIN [Concomitant]
     Indication: PNEUMONIA
     Route: 042
     Dates: start: 20100825, end: 20100904
  11. RIFAMPIN [Concomitant]
     Indication: ENDOCARDITIS
     Route: 048
     Dates: start: 20100825, end: 20100826
  12. ZOSYN [Concomitant]
     Indication: ENDOCARDITIS
     Route: 042
     Dates: start: 20100824, end: 20100829
  13. ZOSYN [Concomitant]
     Indication: PNEUMONIA
     Route: 042
     Dates: start: 20100824, end: 20100829

REACTIONS (4)
  - CARDIAC FAILURE CHRONIC [None]
  - DRUG INEFFECTIVE [None]
  - ENDOCARDITIS [None]
  - SEPSIS [None]
